FAERS Safety Report 15720028 (Version 2)
Quarter: 2018Q4

REPORT INFORMATION
  Report Type: Report from Study
  Country: US (occurrence: US)
  Receive Date: 20181213
  Receipt Date: 20181221
  Transmission Date: 20190205
  Serious: No
  Sender: FDA-Public Use
  Company Number: US-ALEXION PHARMACEUTICALS INC.-A201816489

PATIENT
  Sex: Male
  Weight: 95.69 kg

DRUGS (2)
  1. GLYCOPYRROLATE                     /00196202/ [Concomitant]
     Active Substance: GLYCOPYRROLATE
     Indication: DROOLING
     Dosage: 1 MG, Q6H
     Route: 065
     Dates: end: 2018
  2. SOLIRIS [Suspect]
     Active Substance: ECULIZUMAB
     Indication: PRODUCT USED FOR UNKNOWN INDICATION
     Dosage: UNK
     Route: 065

REACTIONS (4)
  - Weight decreased [Unknown]
  - Fatigue [Unknown]
  - Insomnia [Unknown]
  - Drooling [Unknown]

NARRATIVE: CASE EVENT DATE: 2018
